FAERS Safety Report 8103111-2 (Version None)
Quarter: 2012Q1

REPORT INFORMATION
  Report Type: 
  Country: None (occurrence: None)
  Receive Date: 20120201
  Receipt Date: 20120126
  Transmission Date: 20120608
  Serious: Yes (Other)
  Sender: FDA-Public Use
  Company Number: US-ASTRAZENECA-2012SE05790

PATIENT
  Age: 13590 Day
  Sex: Male
  Weight: 317.6 kg

DRUGS (17)
  1. TIZANIDINE HCL [Concomitant]
     Dates: start: 20090204
  2. GG FUROSEMIDE [Concomitant]
     Dates: start: 20090508
  3. CYCLOBENZAPRINE [Concomitant]
     Dates: start: 20081121
  4. TRAMADOL HCL [Concomitant]
     Dates: start: 20081204
  5. HYDROCODONE BITARTRATE AND ACETAMINOPHEN [Concomitant]
     Dosage: 10.0/325 TWO TIMES A DAY
     Dates: start: 20081121
  6. METOPROLOL TARTRATE [Concomitant]
  7. LISINOPRIL AND HYDROCHLOROTHIAZIDE [Concomitant]
     Dosage: 20/12.5 MG ONE QD
     Dates: start: 20090508
  8. SEROQUEL [Suspect]
     Indication: SLEEP DISORDER
     Route: 048
     Dates: start: 20090105
  9. FLUOXETINE [Concomitant]
     Dosage: 10-20 MG ONE TABLET DAILY AND AS NEEDED
     Dates: start: 20081110
  10. GG FUROSEMIDE [Concomitant]
     Dosage: 1-2 TABS DAILY AS NEEDED
     Route: 048
     Dates: start: 20090508
  11. ASPIRIN [Concomitant]
     Route: 048
  12. ALPRAZOLAM [Concomitant]
     Dates: start: 20080903
  13. ASPIRIN [Concomitant]
     Dates: start: 20101105
  14. PHENTERMINE [Concomitant]
     Dates: start: 20080711
  15. HYDROCODONE BITARTRATE AND ACETAMINOPHEN [Concomitant]
     Dosage: 7.5/750
     Dates: start: 20080616
  16. ULTRAM ER [Concomitant]
     Dates: start: 20081022
  17. SKELAXIN [Concomitant]
     Dates: start: 20090505

REACTIONS (18)
  - INGROWING NAIL [None]
  - ARTHRALGIA [None]
  - RETINOPATHY HYPERTENSIVE [None]
  - GENERALISED ANXIETY DISORDER [None]
  - PARAESTHESIA [None]
  - VIRAL INFECTION [None]
  - ANAEMIA [None]
  - BURNING FEET SYNDROME [None]
  - TYPE 2 DIABETES MELLITUS [None]
  - OBESITY [None]
  - SKIN LESION [None]
  - DIABETIC NEUROPATHY [None]
  - PARONYCHIA [None]
  - CARBUNCLE [None]
  - HYPOTENSION [None]
  - FURUNCLE [None]
  - MUSCULOSKELETAL STIFFNESS [None]
  - PAIN IN EXTREMITY [None]
